FAERS Safety Report 8137523-8 (Version None)
Quarter: 2012Q1

REPORT INFORMATION
  Report Type: 
  Country: None (occurrence: None)
  Receive Date: 20120213
  Receipt Date: 20120125
  Transmission Date: 20120608
  Serious: Yes (Hospitalization)
  Sender: FDA-Public Use
  Company Number: GGEL20120100089

PATIENT
  Age: 39 Year
  Sex: Female

DRUGS (1)
  1. VERAPAMIL [Suspect]
     Indication: PRODUCT USED FOR UNKNOWN INDICATION

REACTIONS (8)
  - HYPOTENSION [None]
  - DYSPNOEA [None]
  - CHEST DISCOMFORT [None]
  - LETHARGY [None]
  - SOMNOLENCE [None]
  - OVERDOSE [None]
  - ATRIOVENTRICULAR BLOCK SECOND DEGREE [None]
  - HYPERHIDROSIS [None]
